FAERS Safety Report 13520317 (Version 1)
Quarter: 2017Q2

REPORT INFORMATION
  Report Type: Spontaneous
  Country: US (occurrence: US)
  Receive Date: 20170507
  Receipt Date: 20170507
  Transmission Date: 20170830
  Serious: Yes (Other)
  Sender: FDA-Public Use
  Company Number: US-BEH-2017080041

PATIENT
  Age: 72 Year
  Sex: Female
  Weight: 54.42 kg

DRUGS (34)
  1. ACETAMINOPHEN. [Concomitant]
     Active Substance: ACETAMINOPHEN
  2. DIPHENHYDRAMINE. [Concomitant]
     Active Substance: DIPHENHYDRAMINE
  3. EPIPEN [Concomitant]
     Active Substance: EPINEPHRINE
  4. ATENOLOL. [Concomitant]
     Active Substance: ATENOLOL
  5. NYSTATIN. [Concomitant]
     Active Substance: NYSTATIN
  6. LACTAID [Concomitant]
     Active Substance: LACTASE
  7. CALTRATE                           /00944201/ [Concomitant]
     Active Substance: CALCIUM CARBONATE\CHOLECALCIFEROL
  8. PREDNISONE. [Concomitant]
     Active Substance: PREDNISONE
  9. MIACALCIN [Concomitant]
     Active Substance: CALCITONIN SALMON
  10. RHINOCORT                          /00212602/ [Concomitant]
  11. SINGULAIR [Concomitant]
     Active Substance: MONTELUKAST SODIUM
  12. ZOVIRAX [Concomitant]
     Active Substance: ACYCLOVIR
  13. AVELOX [Concomitant]
     Active Substance: MOXIFLOXACIN HYDROCHLORIDE
  14. LOVASTATIN. [Concomitant]
     Active Substance: LOVASTATIN
  15. TRAMADOL. [Concomitant]
     Active Substance: TRAMADOL
  16. WELLBUTRIN [Concomitant]
     Active Substance: BUPROPION HYDROCHLORIDE
  17. LMX                                /00033401/ [Concomitant]
  18. METFORMIN [Concomitant]
     Active Substance: METFORMIN HYDROCHLORIDE
  19. SYMBICORT [Concomitant]
     Active Substance: BUDESONIDE\FORMOTEROL FUMARATE DIHYDRATE
  20. CARDIZEM [Concomitant]
     Active Substance: DILTIAZEM HYDROCHLORIDE
  21. COMBIVENT [Concomitant]
     Active Substance: ALBUTEROL SULFATE\IPRATROPIUM BROMIDE
  22. MULTIVITAMIN                       /00097801/ [Concomitant]
     Active Substance: VITAMINS
  23. HIZENTRA [Suspect]
     Active Substance: HUMAN IMMUNOGLOBULIN G
     Dosage: UNK
     Route: 058
  24. HIZENTRA [Suspect]
     Active Substance: HUMAN IMMUNOGLOBULIN G
     Dosage: UNK
     Route: 058
  25. VALSARTAN. [Concomitant]
     Active Substance: VALSARTAN
  26. MELATONIN [Concomitant]
     Active Substance: MELATONIN
  27. ZOFRAN [Concomitant]
     Active Substance: ONDANSETRON HYDROCHLORIDE
  28. PRESERVISION [Concomitant]
     Active Substance: MINERALS\VITAMINS
  29. NAPROSYN [Concomitant]
     Active Substance: NAPROXEN
  30. HIZENTRA [Suspect]
     Active Substance: HUMAN IMMUNOGLOBULIN G
     Indication: IMMUNODEFICIENCY COMMON VARIABLE
     Dosage: 9 G, QW
     Route: 058
     Dates: start: 20110228
  31. KEFLEX [Concomitant]
     Active Substance: CEPHALEXIN
  32. TYLENOL EXTRA STRENGTH [Concomitant]
     Active Substance: ACETAMINOPHEN
  33. XOPENEX [Concomitant]
     Active Substance: LEVALBUTEROL HYDROCHLORIDE
  34. GLUCOSAMINE + CHONDROITIN          /01430901/ [Concomitant]

REACTIONS (3)
  - Post procedural complication [Unknown]
  - Pneumonia [Unknown]
  - Stent placement [Unknown]

NARRATIVE: CASE EVENT DATE: 201703
